FAERS Safety Report 16653693 (Version 1)
Quarter: 2019Q3

REPORT INFORMATION
  Report Type: Report from Study
  Country: AR (occurrence: AR)
  Receive Date: 20190731
  Receipt Date: 20190731
  Transmission Date: 20191004
  Serious: Yes (Other)
  Sender: FDA-Public Use
  Company Number: AR-INCYTE CORPORATION-2019IN007480

PATIENT

DRUGS (1)
  1. JAKAVI [Suspect]
     Active Substance: RUXOLITINIB
     Indication: MYELOFIBROSIS
     Dosage: 40 MG, QD
     Route: 065
     Dates: start: 20190524

REACTIONS (4)
  - Neoplasm recurrence [Not Recovered/Not Resolved]
  - Inappropriate schedule of product administration [Unknown]
  - Myelofibrosis [Not Recovered/Not Resolved]
  - Liver iron concentration abnormal [Not Recovered/Not Resolved]
